FAERS Safety Report 7230215-9 (Version None)
Quarter: 2011Q1

REPORT INFORMATION
  Report Type: 
  Country: None (occurrence: None)
  Receive Date: 20110118
  Receipt Date: 20110106
  Transmission Date: 20110831
  Serious: No
  Sender: FDA-Public Use
  Company Number: US-PFIZER INC-2011006119

PATIENT
  Age: 77 Year
  Sex: Male
  Weight: 90.703 kg

DRUGS (2)
  1. ADVIL CONGESTION RELIEF [Suspect]
     Indication: NASOPHARYNGITIS
     Dosage: 1 TAB, X1
     Dates: start: 20110105, end: 20110105
  2. FOSINOPRIL [Concomitant]

REACTIONS (5)
  - HALLUCINATION [None]
  - INSOMNIA [None]
  - BLOOD PRESSURE INCREASED [None]
  - HEART RATE INCREASED [None]
  - HOT FLUSH [None]
